FAERS Safety Report 6436330-1 (Version None)
Quarter: 2009Q4

REPORT INFORMATION
  Report Type: 
  Country: None (occurrence: None)
  Receive Date: 20091111
  Receipt Date: 20091102
  Transmission Date: 20100525
  Serious: Yes (Hospitalization)
  Sender: FDA-Public Use
  Company Number: B0603245A

PATIENT
  Age: 82 Year
  Sex: Female

DRUGS (3)
  1. PAROXETINE HYDROCHLORIDE [Suspect]
  2. ALFACALCIDOL [Concomitant]
  3. MAGNESIUM OXIDE [Concomitant]

REACTIONS (7)
  - ABULIA [None]
  - BLOOD CALCIUM INCREASED [None]
  - BLOOD CREATININE INCREASED [None]
  - BLOOD UREA INCREASED [None]
  - DECREASED ACTIVITY [None]
  - ELECTROLYTE IMBALANCE [None]
  - INAPPROPRIATE ANTIDIURETIC HORMONE SECRETION [None]
